FAERS Safety Report 4891027-4 (Version None)
Quarter: 2006Q1

REPORT INFORMATION
  Report Type: 
  Country: None (occurrence: None)
  Receive Date: 20060125
  Receipt Date: 20060119
  Transmission Date: 20060701
  Serious: Yes (Other)
  Sender: FDA-Public Use
  Company Number: 2006UW00994

PATIENT

DRUGS (1)
  1. XYLOCAINE 2% WITH EPINEPHRINE [Suspect]
     Dosage: XYLOCAINE 2% W/EPINEPHRINE 1:100,000 MULTI DOSE
     Route: 056

REACTIONS (1)
  - EYE HAEMORRHAGE [None]
